FAERS Safety Report 5480183-5 (Version None)
Quarter: 2007Q4

REPORT INFORMATION
  Report Type: 
  Country: None (occurrence: None)
  Receive Date: 20071009
  Receipt Date: 20070924
  Transmission Date: 20080405
  Serious: Yes (Other)
  Sender: FDA-Public Use
  Company Number: US-ELI_LILLY_AND_COMPANY-US200709001618

PATIENT
  Sex: Female
  Weight: 68.48 kg

DRUGS (1)
  1. EVISTA [Suspect]
     Indication: OSTEOPENIA
     Dosage: 60 MG, UNK
     Route: 048
     Dates: start: 20030101

REACTIONS (3)
  - HAEMATURIA [None]
  - PRURITUS [None]
  - SWELLING [None]
